FAERS Safety Report 4725870-9 (Version None)
Quarter: 2005Q3

REPORT INFORMATION
  Report Type: 
  Country: None (occurrence: None)
  Receive Date: 20050725
  Receipt Date: 20050725
  Transmission Date: 20060218
  Serious: Yes (Other)
  Sender: FDA-Public Use
  Company Number: None

PATIENT
  Sex: Female
  Weight: 87.5442 kg

DRUGS (6)
  1. FENTANYL [Suspect]
     Indication: INTERVERTEBRAL DISC DEGENERATION
     Dosage: 200MCG/HR EVERY 72 HOURS TRANSDERMAL
     Route: 062
     Dates: start: 20050515, end: 20050722
  2. FENTANYL [Suspect]
     Indication: PAIN
     Dosage: 200MCG/HR EVERY 72 HOURS TRANSDERMAL
     Route: 062
     Dates: start: 20050515, end: 20050722
  3. DURAGESIC-100 [Concomitant]
  4. MEDTRONIC PAIN PUMP [Concomitant]
  5. DILAUDID [Concomitant]
  6. SEE IMAGE [Concomitant]

REACTIONS (4)
  - BEDRIDDEN [None]
  - DRUG INEFFECTIVE [None]
  - PHARMACEUTICAL PRODUCT COMPLAINT [None]
  - THERAPEUTIC RESPONSE UNEXPECTED WITH DRUG SUBSTITUTION [None]
